FAERS Safety Report 14147502 (Version 2)
Quarter: 2018Q1

REPORT INFORMATION
  Report Type: Spontaneous
  Country: US (occurrence: US)
  Receive Date: 20171031
  Receipt Date: 20180201
  Transmission Date: 20180508
  Serious: No
  Sender: FDA-Public Use
  Company Number: US-LUNDBECK-DKLU2037459

PATIENT
  Age: 54 Year
  Sex: Female

DRUGS (2)
  1. NORTHERA [Suspect]
     Active Substance: DROXIDOPA
     Indication: PRODUCT USED FOR UNKNOWN INDICATION
     Dosage: SCHEDULE C; TITRATING
     Route: 048
     Dates: start: 20170917
  2. NORTHERA [Suspect]
     Active Substance: DROXIDOPA
     Dosage: SCHEDUEL C
     Route: 065

REACTIONS (6)
  - Hypoaesthesia [Unknown]
  - Arteriosclerosis [Unknown]
  - Dizziness [Unknown]
  - Fall [Unknown]
  - Therapeutic response decreased [Unknown]
  - Hypoaesthesia oral [Unknown]

NARRATIVE: CASE EVENT DATE: 20170917
